FAERS Safety Report 17984886 (Version 2)
Quarter: 2020Q3

REPORT INFORMATION
  Report Type: Spontaneous
  Country: CH (occurrence: CH)
  Receive Date: 20200706
  Receipt Date: 20200724
  Transmission Date: 20201103
  Serious: Yes (Hospitalization)
  Sender: FDA-Public Use
  Company Number: CH-ALLERGAN-2024681US

PATIENT
  Sex: Female
  Weight: 93 kg

DRUGS (3)
  1. XARELTO [Suspect]
     Active Substance: RIVAROXABAN
     Indication: ATRIAL FIBRILLATION
     Dosage: 20 MG, QD
     Route: 048
     Dates: start: 20200602
  2. ESCITALOPRAM OXALATE ? BP [Suspect]
     Active Substance: ESCITALOPRAM OXALATE
     Indication: ADJUSTMENT DISORDER
     Dosage: 5 MG, QD
     Route: 048
  3. LOSARTAN AND HYDROCHLOROTHIAZIDE [Concomitant]
     Active Substance: HYDROCHLOROTHIAZIDE\LOSARTAN POTASSIUM
     Indication: HYPERTENSION
     Dosage: 50/12,5 MG ONCE DAILY
     Route: 065

REACTIONS (6)
  - Hypertensive crisis [Recovered/Resolved]
  - Product use in unapproved indication [Unknown]
  - Cystitis haemorrhagic [Recovered/Resolved]
  - Tachycardia [Recovered/Resolved]
  - Atrial fibrillation [Recovered/Resolved]
  - Cardiac failure [Recovered/Resolved]
